FAERS Safety Report 11987555 (Version 1)
Quarter: 2016Q1

REPORT INFORMATION
  Report Type: Spontaneous
  Country: US (occurrence: None)
  Receive Date: 20160201
  Receipt Date: 20160201
  Transmission Date: 20160526
  Serious: No
  Sender: FDA-Public Use
  Company Number: None

PATIENT

DRUGS (2)
  1. LEVOTHYROXINE 25 MCG MYLAN [Suspect]
     Active Substance: LEVOTHYROXINE
  2. METOPROLOL. [Suspect]
     Active Substance: METOPROLOL

REACTIONS (2)
  - Intercepted drug administration error [None]
  - Drug dispensing error [None]

NARRATIVE: CASE EVENT DATE: 2015
